FAERS Safety Report 21968442 (Version 1)
Quarter: 2023Q1

REPORT INFORMATION
  Report Type: Report from Study
  Country: GB (occurrence: GB)
  Receive Date: 20230208
  Receipt Date: 20230208
  Transmission Date: 20230418
  Serious: Yes (Hospitalization)
  Sender: FDA-Public Use
  Company Number: GB-JNJFOC-20230202253

PATIENT
  Sex: Female
  Weight: 97.5 kg

DRUGS (11)
  1. TREMFYA [Suspect]
     Active Substance: GUSELKUMAB
     Indication: Psoriasis
     Route: 058
     Dates: start: 20210508
  2. VENTOLIN [Concomitant]
     Active Substance: ALBUTEROL SULFATE
     Dates: start: 19820715
  3. AMITRIPTYLINE [Concomitant]
     Active Substance: AMITRIPTYLINE
     Dates: start: 20141210
  4. CETRABEN EMOLLIENT BATH ADDITIVE [Concomitant]
     Dates: start: 20160701
  5. EXOREX [Concomitant]
     Active Substance: COAL TAR
     Dates: start: 20160701
  6. LEFLUNOMIDE [Concomitant]
     Active Substance: LEFLUNOMIDE
     Dates: start: 20161103
  7. BALNEUM [GLYCINE MAX SEED OIL] [Concomitant]
     Dates: start: 20190502
  8. BETAMETHASONE\CALCIPOTRIENE [Concomitant]
     Active Substance: BETAMETHASONE\CALCIPOTRIENE
     Dates: start: 20190802
  9. ALPHOSYL [ALLANTOIN;COAL TAR] [Concomitant]
     Dates: start: 20191025
  10. SEBUTONE [Concomitant]
     Dates: start: 20191025
  11. ACETAMINOPHEN [Concomitant]
     Active Substance: ACETAMINOPHEN
     Dates: start: 20191212

REACTIONS (2)
  - Pneumonia [Recovered/Resolved with Sequelae]
  - Asthma [Recovered/Resolved with Sequelae]

NARRATIVE: CASE EVENT DATE: 20220127
